FAERS Safety Report 5271422-4 (Version None)
Quarter: 2007Q1

REPORT INFORMATION
  Report Type: 
  Country: None (occurrence: None)
  Receive Date: 20061214
  Receipt Date: 20060117
  Transmission Date: 20070707
  Serious: Yes (Hospitalization, Other)
  Sender: FDA-Public Use
  Company Number: 2005018055

PATIENT
  Age: 68 Year
  Sex: Female
  Weight: 108.8633 kg

DRUGS (5)
  1. BEXTRA [Suspect]
     Indication: ARTHRALGIA
     Dosage: (10 MG),ORAL
     Route: 048
  2. CELEBREX [Suspect]
     Indication: ILL-DEFINED DISORDER
     Dosage: ORAL
     Route: 048
  3. VIOXX [Suspect]
     Indication: ILL-DEFINED DISORDER
  4. GLYBURIDE [Concomitant]
  5. DETROL LA [Concomitant]

REACTIONS (6)
  - BLOOD URINE [None]
  - DYSPNOEA [None]
  - PNEUMONIA [None]
  - RENAL IMPAIRMENT [None]
  - TREMOR [None]
  - UNEVALUABLE EVENT [None]
